FAERS Safety Report 7240332-5 (Version None)
Quarter: 2011Q1

REPORT INFORMATION
  Report Type: 
  Country: None (occurrence: None)
  Receive Date: 20110124
  Receipt Date: 20110114
  Transmission Date: 20110831
  Serious: Yes (Hospitalization)
  Sender: FDA-Public Use
  Company Number: US-US-EMD SERONO, INC.-230735J10USA

PATIENT
  Sex: Female

DRUGS (1)
  1. REBIF [Suspect]
     Indication: MULTIPLE SCLEROSIS
     Route: 058
     Dates: start: 20090223

REACTIONS (8)
  - CERVICAL DYSPLASIA [None]
  - HYPERTENSION [None]
  - HUMAN PAPILLOMA VIRUS TEST POSITIVE [None]
  - HAEMORRHAGE [None]
  - VAGINAL INFECTION [None]
  - DIARRHOEA [None]
  - URINARY TRACT INFECTION [None]
  - BRONCHITIS [None]
